FAERS Safety Report 6596604-0 (Version None)
Quarter: 2010Q1

REPORT INFORMATION
  Report Type: 
  Country: None (occurrence: None)
  Receive Date: 20100222
  Receipt Date: 20100222
  Transmission Date: 20100710
  Serious: Yes (Other)
  Sender: FDA-Public Use
  Company Number: None

PATIENT
  Sex: Female
  Weight: 166.4701 kg

DRUGS (8)
  1. PEGASYS [Suspect]
     Indication: HEPATITIS C
     Dosage: 180 MCG PREFILLED SYRINGE WEEKLY SQ
     Route: 058
     Dates: start: 20100202
  2. RIBAPAK 600/600 MG TAB 56 600/600 MG TAB 5612 HOFFMANN-LA-ROCHE [Suspect]
     Indication: HEPATITIS C
     Dosage: 1200MG DAILY DAILY PO
     Route: 048
     Dates: start: 20100202
  3. KEPPRA [Concomitant]
  4. SOMA [Concomitant]
  5. LORCET-HD [Concomitant]
  6. WATER PILLS [Concomitant]
  7. METAMUCIL-2 [Concomitant]
  8. DULCOLAX [Concomitant]

REACTIONS (2)
  - GRAND MAL CONVULSION [None]
  - TOOTH FRACTURE [None]
